FAERS Safety Report 24696186 (Version 1)
Quarter: 2024Q4

REPORT INFORMATION
  Report Type: Spontaneous
  Country: CN (occurrence: CN)
  Receive Date: 20241204
  Receipt Date: 20241204
  Transmission Date: 20250115
  Serious: Yes (Life-Threatening, Other)
  Sender: GLAND PHARMA LTD
  Company Number: CN-GLANDPHARMA-CN-2024GLNLIT01102

PATIENT
  Age: 24 Year
  Sex: Male

DRUGS (11)
  1. DEXAMETHASONE SODIUM PHOSPHATE [Suspect]
     Active Substance: DEXAMETHASONE SODIUM PHOSPHATE
     Indication: T-cell lymphoma
     Dosage: 15 MG/(M2.D)-D1-12
     Route: 041
  2. DEXAMETHASONE SODIUM PHOSPHATE [Suspect]
     Active Substance: DEXAMETHASONE SODIUM PHOSPHATE
     Indication: Haemophagocytic lymphohistiocytosis
  3. CISPLATIN [Suspect]
     Active Substance: CISPLATIN
     Indication: T-cell lymphoma
     Dosage: 20 MG/M*2
     Route: 041
  4. GEMCITABINE HYDROCHLORIDE [Suspect]
     Active Substance: GEMCITABINE HYDROCHLORIDE
     Indication: T-cell lymphoma
     Route: 041
  5. RUXOLITINIB PHOSPHATE [Suspect]
     Active Substance: RUXOLITINIB PHOSPHATE
     Indication: T-cell lymphoma
     Route: 048
  6. ETOPOSIDE [Suspect]
     Active Substance: ETOPOSIDE
     Indication: T-cell lymphoma
     Dosage: FOR 2 WEEKS
     Route: 041
  7. PEGASPARGASE [Suspect]
     Active Substance: PEGASPARGASE
     Indication: T-cell lymphoma
     Dosage: 2500 IU/M2 (MAXIMUM DOSE 3750 IU/M2)
     Route: 030
  8. METHOTREXATE [Concomitant]
     Active Substance: METHOTREXATE
     Route: 065
  9. ASPARAGINASE [Concomitant]
     Active Substance: ASPARAGINASE
     Route: 065
  10. IFOSFAMIDE [Concomitant]
     Active Substance: IFOSFAMIDE
     Route: 065
  11. OXALIPLATIN [Concomitant]
     Active Substance: OXALIPLATIN
     Indication: Angiocentric lymphoma
     Route: 065

REACTIONS (5)
  - Neutropenia [Recovered/Resolved]
  - Thrombocytopenia [Recovered/Resolved]
  - Pyrexia [Recovered/Resolved]
  - Product use in unapproved indication [Unknown]
  - Therapeutic product effect incomplete [Unknown]
